FAERS Safety Report 9853251 (Version 2)
Quarter: 2014Q1

REPORT INFORMATION
  Report Type: Spontaneous
  Country: GB (occurrence: None)
  Receive Date: 20140127
  Receipt Date: 20140205
  Transmission Date: 20141002
  Serious: Yes (Other)
  Sender: FDA-Public Use
  Company Number: AUR-APL-2014-00491

PATIENT
  Age: 56 Year
  Sex: Female

DRUGS (2)
  1. PIPERACILLIN-TAZOBACTAM [Suspect]
     Indication: PNEUMONIA
  2. PHENYTOIN (PHENYTOIN) [Concomitant]

REACTIONS (6)
  - Rash [None]
  - Oedema [None]
  - Erythema [None]
  - Blister [None]
  - Aspartate aminotransferase increased [None]
  - Gamma-glutamyltransferase increased [None]
